FAERS Safety Report 23353543 (Version 1)
Quarter: 2023Q4

REPORT INFORMATION
  Report Type: Spontaneous
  Country: US (occurrence: US)
  Receive Date: 20231231
  Receipt Date: 20231231
  Transmission Date: 20240109
  Serious: No
  Sender: FDA-Public Use
  Company Number: US-ABBVIE-5566348

PATIENT
  Sex: Female

DRUGS (1)
  1. BOTOX COSMETIC [Suspect]
     Active Substance: ONABOTULINUMTOXINA
     Indication: Face lift
     Dosage: TIME INTERVAL: AS NECESSARY
     Route: 065
     Dates: start: 20231207, end: 20231207

REACTIONS (5)
  - Eyelid ptosis [Recovering/Resolving]
  - Concussion [Recovering/Resolving]
  - Diplopia [Recovering/Resolving]
  - Accident [Recovering/Resolving]
  - Off label use [Recovering/Resolving]

NARRATIVE: CASE EVENT DATE: 20231201
